FAERS Safety Report 6524541-6 (Version None)
Quarter: 2010Q1

REPORT INFORMATION
  Report Type: 
  Country: None (occurrence: None)
  Receive Date: 20100104
  Receipt Date: 20091228
  Transmission Date: 20100710
  Serious: Yes (Other)
  Sender: FDA-Public Use
  Company Number: JP-ROCHE-671076

PATIENT
  Sex: Female
  Weight: 31 kg

DRUGS (6)
  1. TAMIFLU [Suspect]
     Indication: INFLUENZA
     Dosage: DRUG: TAMIFLU DRY SYRUP 3%(OSELTAMIVIR)
     Route: 048
     Dates: start: 20091116, end: 20091116
  2. TAMIFLU [Suspect]
     Route: 048
     Dates: end: 20091117
  3. CALONAL [Suspect]
     Indication: DRUG USE FOR UNKNOWN INDICATION
     Dosage: DOSE, FREQUENCY UNSPECIFIED.FORM:ORAL FORMULATION.
     Route: 048
  4. ASVERIN [Concomitant]
     Route: 048
     Dates: start: 20091116, end: 20091120
  5. MUCODYNE [Concomitant]
     Route: 048
     Dates: start: 20091116, end: 20091120
  6. PERIACTIN [Concomitant]
     Route: 048
     Dates: start: 20091116, end: 20091120

REACTIONS (1)
  - ABNORMAL BEHAVIOUR [None]
